FAERS Safety Report 21291197 (Version 1)
Quarter: 2022Q3

REPORT INFORMATION
  Report Type: Spontaneous
  Country: US (occurrence: US)
  Receive Date: 20220903
  Receipt Date: 20220903
  Transmission Date: 20221027
  Serious: No
  Sender: FDA-Public Use
  Company Number: US-drreddys-SPO/USA/22/0153681

PATIENT
  Age: 18 Year
  Sex: Female

DRUGS (1)
  1. ZENATANE [Suspect]
     Active Substance: ISOTRETINOIN
     Indication: Acne
     Dosage: RMA ISSUE DATE: 18 APRIL 2022 03:23:25 PM, 17 MAY 2022 05:08:59 PM, 17 JUNE 2022 11:00:16 AM AND 19

REACTIONS (1)
  - Treatment noncompliance [Unknown]
